FAERS Safety Report 7878728-0 (Version None)
Quarter: 2011Q4

REPORT INFORMATION
  Report Type: 
  Country: None (occurrence: None)
  Receive Date: 20111021
  Receipt Date: 20110729
  Transmission Date: 20120403
  Serious: No
  Sender: FDA-Public Use
  Company Number: US-005961

PATIENT
  Sex: Male
  Weight: 67.1324 kg

DRUGS (4)
  1. FISH OIL [Concomitant]
  2. DEGARELIX (240 MG, 80 MG) [Suspect]
     Indication: PROSTATE CANCER
     Dosage: 240 MG 1 X  SUBCUTANEOUS, 80MG1X/MONTH SUBCUTANEOUS
     Route: 058
     Dates: start: 20101001, end: 20101001
  3. DEGARELIX (240 MG, 80 MG) [Suspect]
     Indication: PROSTATE CANCER
     Dosage: 240 MG 1 X  SUBCUTANEOUS, 80MG1X/MONTH SUBCUTANEOUS
     Route: 058
     Dates: start: 20101101
  4. IBUPROFEN (ADVIL) [Concomitant]

REACTIONS (8)
  - SKIN WARM [None]
  - ASTHENIA [None]
  - INJECTION SITE WARMTH [None]
  - INJECTION SITE NODULE [None]
  - INJECTION SITE PAIN [None]
  - HOT FLUSH [None]
  - HYPERHIDROSIS [None]
  - MUSCULAR WEAKNESS [None]
